FAERS Safety Report 19691040 (Version 1)
Quarter: 2021Q3

REPORT INFORMATION
  Report Type: Spontaneous
  Country: US (occurrence: US)
  Receive Date: 20210812
  Receipt Date: 20210812
  Transmission Date: 20211014
  Serious: Yes (Death)
  Sender: FDA-Public Use
  Company Number: None

PATIENT
  Age: 65 Year
  Sex: Male

DRUGS (4)
  1. GABAPENTIN. [Concomitant]
     Active Substance: GABAPENTIN
  2. STELARA [Concomitant]
     Active Substance: USTEKINUMAB
  3. MELOXICAM. [Concomitant]
     Active Substance: MELOXICAM
  4. COSENTYX [Suspect]
     Active Substance: SECUKINUMAB
     Indication: PSORIASIS
     Route: 058
     Dates: start: 20200519

REACTIONS (1)
  - Death [None]

NARRATIVE: CASE EVENT DATE: 20210714
